FAERS Safety Report 11872713 (Version 4)
Quarter: 2016Q1

REPORT INFORMATION
  Report Type: Spontaneous
  Country: US (occurrence: US)
  Receive Date: 20151228
  Receipt Date: 20160201
  Transmission Date: 20160526
  Serious: Yes (Other)
  Sender: FDA-Public Use
  Company Number: US-BRISTOL-MYERS SQUIBB COMPANY-BMS-2015-089793

PATIENT
  Age: 69 Year
  Sex: Male
  Weight: 117.91 kg

DRUGS (4)
  1. RANEXA [Concomitant]
     Active Substance: RANOLAZINE
     Indication: PRODUCT USED FOR UNKNOWN INDICATION
     Dosage: UNK, BID
     Route: 065
  2. ELIQUIS [Suspect]
     Active Substance: APIXABAN
     Indication: ATRIAL FIBRILLATION
     Dosage: 2.5 MG, UNK
     Route: 048
     Dates: start: 20151007
  3. ELIQUIS [Suspect]
     Active Substance: APIXABAN
     Indication: CEREBROVASCULAR ACCIDENT PROPHYLAXIS
     Dosage: 5 MG, UNK
     Route: 048
     Dates: start: 20140611
  4. SOTALOL. [Concomitant]
     Active Substance: SOTALOL
     Indication: PRODUCT USED FOR UNKNOWN INDICATION
     Dosage: UNK, BID
     Route: 065

REACTIONS (7)
  - Epistaxis [Recovering/Resolving]
  - Wrong technique in product usage process [Unknown]
  - Conjunctival haemorrhage [Unknown]
  - Contusion [Recovering/Resolving]
  - Ocular hyperaemia [Unknown]
  - Ecchymosis [Unknown]
  - Anal fistula [Unknown]

NARRATIVE: CASE EVENT DATE: 20151007
